FAERS Safety Report 8129736-6 (Version None)
Quarter: 2012Q1

REPORT INFORMATION
  Report Type: 
  Country: None (occurrence: None)
  Receive Date: 20120103
  Receipt Date: 20110829
  Transmission Date: 20120608
  Serious: No
  Sender: FDA-Public Use
  Company Number: AE-2011-001117

PATIENT
  Age: 54 Year
  Sex: Male
  Weight: 73.9363 kg

DRUGS (7)
  1. INCIVEK [Suspect]
     Dosage: 2250 MG (750 MG, 3 IN 1 D), ORAL
     Route: 048
     Dates: start: 20110818
  2. RIBAVIRIN (RIBAVIRIN) 08/18/2011 - ONGOING [Concomitant]
  3. LEVOTHYROXINE SODIUM [Concomitant]
  4. CELEXA [Concomitant]
  5. PEGINTERFERON (PEG-INTERFERON ALFA-2A) 08/18/2011 - ONGOING [Concomitant]
  6. VICODIN [Concomitant]
  7. NEXIUM [Concomitant]

REACTIONS (3)
  - HORDEOLUM [None]
  - HEAT RASH [None]
  - RASH PRURITIC [None]
